FAERS Safety Report 22714384 (Version 3)
Quarter: 2024Q1

REPORT INFORMATION
  Report Type: Other
  Country: US (occurrence: None)
  Receive Date: 20230718
  Receipt Date: 20240319
  Transmission Date: 20240409
  Serious: No
  Sender: FDA-Public Use
  Company Number: US-ROCHE-3385434

PATIENT
  Age: 33 Year
  Sex: Female
  Weight: 83.99 kg

DRUGS (2)
  1. OCREVUS [Suspect]
     Active Substance: OCRELIZUMAB
     Indication: Relapsing-remitting multiple sclerosis
     Dosage: DATE OF TREATMENT FOR 1ST HALF INFUSION: 22/JUL/2022, 05/AUG/2022, 03/FEB/2023
     Route: 042
     Dates: start: 202207
  2. ERGOCALCIFEROL [Concomitant]
     Active Substance: ERGOCALCIFEROL

REACTIONS (3)
  - Maternal exposure before pregnancy [Unknown]
  - COVID-19 [Recovered/Resolved]
  - Paraesthesia [Recovered/Resolved]

NARRATIVE: CASE EVENT DATE: 20230205
